FAERS Safety Report 8158953-4 (Version None)
Quarter: 2012Q1

REPORT INFORMATION
  Report Type: 
  Country: None (occurrence: None)
  Receive Date: 20120217
  Receipt Date: 20120203
  Transmission Date: 20120608
  Serious: Yes (Hospitalization)
  Sender: FDA-Public Use
  Company Number: 1161831

PATIENT
  Age: 38 Year
  Sex: Female

DRUGS (8)
  1. CARBOPLATIN [Suspect]
     Indication: CERVIX CARCINOMA
     Dosage: AUC5, IN ONE HOUR, INTRAVENOUS
     Route: 042
  2. DEXAMETHASONE [Concomitant]
  3. SODIUM CHLORIDE [Concomitant]
  4. RANITIDINE [Concomitant]
  5. SEROTONIN (5HT3) ANTAGONISTS [Concomitant]
  6. PACLITAXEL [Suspect]
     Indication: CERVIX CARCINOMA
     Dosage: 155 MG/M**2, OVER 3 HOURS,
  7. PHENERGAN [Concomitant]
  8. CISPLATIN [Suspect]
     Indication: CERVIX CARCINOMA
     Dosage: 40 MG, WEEKLY FOR 5 DOSES,

REACTIONS (1)
  - PANCYTOPENIA [None]
